FAERS Safety Report 10672626 (Version 3)
Quarter: 2015Q1

REPORT INFORMATION
  Report Type: Spontaneous
  Country: US (occurrence: US)
  Receive Date: 20141223
  Receipt Date: 20150210
  Transmission Date: 20150720
  Serious: No
  Sender: FDA-Public Use
  Company Number: US-GLAXOSMITHKLINE-A1089839A

PATIENT

DRUGS (2)
  1. SEREVENT [Suspect]
     Active Substance: SALMETEROL XINAFOATE
  2. ANORO ELLIPTA [Suspect]
     Active Substance: UMECLIDINIUM BROMIDE\VILANTEROL TRIFENATATE
     Dosage: 1 PUFF(S), BID
     Dates: start: 201410

REACTIONS (2)
  - Medication error [Unknown]
  - Prescribed overdose [Unknown]
